FAERS Safety Report 26216498 (Version 1)
Quarter: 2025Q4

REPORT INFORMATION
  Report Type: Spontaneous
  Country: GB (occurrence: GB)
  Receive Date: 20251231
  Receipt Date: 20251231
  Transmission Date: 20260118
  Serious: Yes (Other)
  Sender: RANBAXY
  Company Number: GB-MHRA-MED-202512122130066900-SKRFP

PATIENT
  Age: 37 Year
  Sex: Female

DRUGS (1)
  1. PREGABALIN [Suspect]
     Active Substance: PREGABALIN
     Indication: Product used for unknown indication
     Dosage: 18X 300MG
     Route: 065

REACTIONS (4)
  - Drug dependence [Unknown]
  - Blood urine present [Not Recovered/Not Resolved]
  - Swelling [Unknown]
  - Back pain [Unknown]

NARRATIVE: CASE EVENT DATE: 20251209
